FAERS Safety Report 7370141-8 (Version None)
Quarter: 2011Q1

REPORT INFORMATION
  Report Type: 
  Country: None (occurrence: None)
  Receive Date: 20110323
  Receipt Date: 20110310
  Transmission Date: 20110831
  Serious: Yes (Hospitalization, Other)
  Sender: FDA-Public Use
  Company Number: PHHY2011CH20034

PATIENT
  Sex: Male
  Weight: 76 kg

DRUGS (2)
  1. AFINITOR [Suspect]
     Indication: NEUROENDOCRINE CARCINOMA
     Dosage: 10 MG, QD
     Route: 048
     Dates: start: 20100603, end: 20101123
  2. SANDOSTATIN [Concomitant]
     Dosage: UNK
     Route: 058

REACTIONS (5)
  - CARDIOMYOPATHY [None]
  - EJECTION FRACTION DECREASED [None]
  - CARDIAC FAILURE [None]
  - MITRAL VALVE INCOMPETENCE [None]
  - CARDIOMEGALY [None]
